FAERS Safety Report 4864564-6 (Version None)
Quarter: 2005Q4

REPORT INFORMATION
  Report Type: 
  Country: None (occurrence: None)
  Receive Date: 20051222
  Receipt Date: 20050915
  Transmission Date: 20060501
  Serious: Yes (Hospitalization, Disabling)
  Sender: FDA-Public Use
  Company Number: PHHO2005MY14538

PATIENT
  Age: 54 Year
  Sex: Female
  Weight: 50.3 kg

DRUGS (4)
  1. GLEEVEC [Suspect]
     Indication: CHRONIC MYELOID LEUKAEMIA
     Route: 048
  2. GLEEVEC [Suspect]
     Dosage: UNK, NO TREATMENT
     Dates: end: 20050902
  3. GLEEVEC [Suspect]
     Dosage: 300 MG, QD
     Route: 048
     Dates: start: 20050903
  4. HYDROXYUREA [Concomitant]
     Indication: PLATELET DISORDER

REACTIONS (2)
  - MYOSITIS [None]
  - PAIN IN EXTREMITY [None]
